FAERS Safety Report 18855680 (Version 1)
Quarter: 2021Q1

REPORT INFORMATION
  Report Type: Spontaneous
  Country: AU (occurrence: AU)
  Receive Date: 20210206
  Receipt Date: 20210206
  Transmission Date: 20210420
  Serious: Yes (Death, Life-Threatening, Hospitalization, Other)
  Sender: FDA-Public Use
  Company Number: AU-AXELLIA-003650

PATIENT
  Age: 70 Year
  Sex: Female

DRUGS (10)
  1. TERBUTALINE [Concomitant]
     Active Substance: TERBUTALINE
  2. VANCOMYCIN [Suspect]
     Active Substance: VANCOMYCIN
     Indication: STAPHYLOCOCCAL INFECTION
     Dosage: CONTINUOUS ELASTOMETRIC INFUSORS
     Route: 014
     Dates: start: 20181212, end: 20181212
  3. VANCOMYCIN [Suspect]
     Active Substance: VANCOMYCIN
     Indication: STAPHYLOCOCCAL INFECTION
     Dosage: CONTINUOUS ELASTOMETRIC INFUSORS
     Dates: start: 20181114, end: 20181213
  4. ACETYLSALICYLIC ACID [Concomitant]
     Active Substance: ASPIRIN
  5. PARACETAMOL [Concomitant]
     Active Substance: ACETAMINOPHEN
  6. PREGABALIN. [Concomitant]
     Active Substance: PREGABALIN
  7. RAMIPRIL. [Concomitant]
     Active Substance: RAMIPRIL
  8. PANTOPRAZOLE [Concomitant]
     Active Substance: PANTOPRAZOLE
  9. ROSUVASTATIN/ROSUVASTATIN CALCIUM [Concomitant]
     Active Substance: ROSUVASTATIN CALCIUM
  10. BUDESONIDE/FORMOTEROL FUMARATE [Concomitant]
     Active Substance: BUDESONIDE\FORMOTEROL FUMARATE
     Route: 055

REACTIONS (6)
  - Renal failure [Fatal]
  - Drug reaction with eosinophilia and systemic symptoms [Fatal]
  - Cytomegalovirus infection [Fatal]
  - Multiple organ dysfunction syndrome [Fatal]
  - Gastrointestinal inflammation [Fatal]
  - Colitis [Fatal]

NARRATIVE: CASE EVENT DATE: 20181202
